FAERS Safety Report 9677594 (Version 1)
Quarter: 2013Q4

REPORT INFORMATION
  Report Type: Spontaneous
  Country: CA (occurrence: CA)
  Receive Date: 20131108
  Receipt Date: 20131108
  Transmission Date: 20140711
  Serious: Yes (Other)
  Sender: FDA-Public Use
  Company Number: CA-ASTRAZENECA-2013SE80477

PATIENT
  Sex: 0

DRUGS (1)
  1. VIMOVO [Suspect]
     Dosage: 500 MG/20 MG
     Route: 048

REACTIONS (1)
  - Glomerulonephropathy [Unknown]
